FAERS Safety Report 16103306 (Version 1)
Quarter: 2019Q1

REPORT INFORMATION
  Report Type: Spontaneous
  Country: PL (occurrence: PL)
  Receive Date: 20190322
  Receipt Date: 20190322
  Transmission Date: 20190418
  Serious: Yes (Other)
  Sender: FDA-Public Use
  Company Number: PL-SUN PHARMACEUTICAL INDUSTRIES LTD-2019R1-202555

PATIENT
  Age: 6 Year
  Sex: Female

DRUGS (4)
  1. PREDNISONE. [Concomitant]
     Active Substance: PREDNISONE
     Indication: AUTOIMMUNE HEPATITIS
     Dosage: UNK
     Route: 065
  2. AZATHIOPRINE. [Suspect]
     Active Substance: AZATHIOPRINE
     Indication: AUTOIMMUNE HEPATITIS
     Route: 065
  3. AZATHIOPRINE. [Suspect]
     Active Substance: AZATHIOPRINE
     Dosage: 25 MILLIGRAM, DAILY
  4. ALLOPURINOL. [Suspect]
     Active Substance: ALLOPURINOL
     Indication: AUTOIMMUNE HEPATITIS
     Dosage: 25 MILLIGRAM, DAILY
     Route: 065

REACTIONS (2)
  - Alanine aminotransferase increased [Not Recovered/Not Resolved]
  - Drug interaction [Unknown]
